FAERS Safety Report 4448094-1 (Version None)
Quarter: 2004Q3

REPORT INFORMATION
  Report Type: 
  Country: None (occurrence: None)
  Receive Date: 20040913
  Receipt Date: 20040819
  Transmission Date: 20050211
  Serious: Yes (Life-Threatening, Hospitalization, Other)
  Sender: FDA-Public Use
  Company Number: NO-BRISTOL-MYERS SQUIBB COMPANY-12676797

PATIENT
  Age: 56 Year
  Sex: Female

DRUGS (5)
  1. PLATINOL [Suspect]
     Indication: ANAL CANCER METASTATIC
     Route: 042
     Dates: start: 20040714, end: 20040714
  2. FLUOROURACIL [Concomitant]
     Indication: ANAL CANCER METASTATIC
     Dates: start: 20040714, end: 20040718
  3. DEXAMETHASONE [Concomitant]
     Indication: ANTIEMETIC SUPPORTIVE CARE
     Dates: start: 20040714, end: 20040715
  4. ONDANSETRON [Concomitant]
     Indication: ANTIEMETIC SUPPORTIVE CARE
     Dates: start: 20040714, end: 20040714
  5. METOCLOPRAMIDE [Concomitant]
     Indication: ANTIEMETIC SUPPORTIVE CARE
     Dates: start: 20040716

REACTIONS (3)
  - BLOOD CREATININE INCREASED [None]
  - CEREBRAL INFARCTION [None]
  - PARALYSIS [None]
